FAERS Safety Report 10444521 (Version 1)
Quarter: 2014Q3

REPORT INFORMATION
  Report Type: Spontaneous
  Country: US (occurrence: US)
  Receive Date: 20140910
  Receipt Date: 20140910
  Transmission Date: 20150326
  Serious: Yes (Other)
  Sender: FDA-Public Use
  Company Number: US-JNJFOC-20140904598

PATIENT
  Sex: Female
  Weight: 58.97 kg

DRUGS (4)
  1. LAMICTAL [Concomitant]
     Active Substance: LAMOTRIGINE
     Indication: CONVULSION
     Dosage: 225 MG (150 MG TABLET ONE AND A HALF TABLETS)
     Route: 048
  2. TOPAMAX [Suspect]
     Active Substance: TOPIRAMATE
     Indication: CONVULSION
     Route: 048
  3. SYNTHROID [Concomitant]
     Active Substance: LEVOTHYROXINE SODIUM
     Indication: THYROID DISORDER
     Route: 065
  4. TOPAMAX [Suspect]
     Active Substance: TOPIRAMATE
     Indication: CONVULSION
     Route: 048

REACTIONS (9)
  - Sinus disorder [Unknown]
  - Acalculia [Unknown]
  - Convulsion [Recovered/Resolved]
  - Treatment noncompliance [Unknown]
  - Drug dose omission [Not Recovered/Not Resolved]
  - Gait disturbance [Unknown]
  - Osteoporosis [Not Recovered/Not Resolved]
  - Toothache [Unknown]
  - Back pain [Unknown]
